FAERS Safety Report 9937141 (Version 2)
Quarter: 2014Q2

REPORT INFORMATION
  Report Type: Spontaneous
  Country: FR (occurrence: KH)
  Receive Date: 20140301
  Receipt Date: 20140407
  Transmission Date: 20141212
  Serious: No
  Sender: FDA-Public Use
  Company Number: FR-ROCHE-1355718

PATIENT
  Sex: Female
  Weight: 57 kg

DRUGS (4)
  1. AVASTIN [Suspect]
     Indication: COLON CANCER
     Route: 042
     Dates: start: 20131125, end: 20140120
  2. IRINOTECAN [Suspect]
     Indication: COLON CANCER
     Route: 042
     Dates: start: 20131125
  3. 5-FU [Suspect]
     Indication: COLON CANCER
     Route: 042
     Dates: start: 20131125
  4. 5-FU [Suspect]
     Route: 042
     Dates: start: 20131125

REACTIONS (1)
  - Phlebitis [Recovered/Resolved]
